FAERS Safety Report 21613020 (Version 5)
Quarter: 2023Q1

REPORT INFORMATION
  Report Type: Report from Study
  Country: US (occurrence: US)
  Receive Date: 20221118
  Receipt Date: 20230330
  Transmission Date: 20230418
  Serious: No
  Sender: FDA-Public Use
  Company Number: US-002147023-NVSC2022US259752

PATIENT
  Sex: Female

DRUGS (3)
  1. ENTRESTO [Suspect]
     Active Substance: SACUBITRIL\VALSARTAN
     Indication: Product used for unknown indication
     Dosage: UNK (TAKEN OFF IT AFTER SURGERY)
     Route: 065
     Dates: start: 201912
  2. ENTRESTO [Suspect]
     Active Substance: SACUBITRIL\VALSARTAN
     Dosage: 1 DOSAGE FORM, BID (24/26 MG)
     Route: 065
  3. PRILOSEC [Concomitant]
     Active Substance: OMEPRAZOLE MAGNESIUM
     Indication: Product used for unknown indication
     Dosage: UNK
     Route: 065

REACTIONS (9)
  - Fluid retention [Unknown]
  - Rhinorrhoea [Unknown]
  - Eructation [Unknown]
  - Decreased appetite [Unknown]
  - Blood glucose abnormal [Unknown]
  - Illness [Unknown]
  - Abdominal discomfort [Unknown]
  - COVID-19 [Unknown]
  - Cough [Unknown]
